FAERS Safety Report 10227572 (Version 1)
Quarter: 2014Q2

REPORT INFORMATION
  Report Type: Spontaneous
  Country: US (occurrence: None)
  Receive Date: 20140609
  Receipt Date: 20140609
  Transmission Date: 20141212
  Serious: Yes (Other)
  Sender: FDA-Public Use
  Company Number: None

PATIENT
  Age: 7 Year
  Sex: Male
  Weight: 19.96 kg

DRUGS (7)
  1. EXJADE [Suspect]
     Indication: SICKLE CELL ANAEMIA
     Route: 048
     Dates: start: 20140423, end: 201405
  2. EXJADE [Suspect]
     Indication: SICKLE CELL ANAEMIA
     Route: 048
     Dates: start: 20140423, end: 201405
  3. IBUPROFEN [Concomitant]
  4. FLOVENT [Concomitant]
  5. PROAIR [Concomitant]
  6. VIT D [Concomitant]
  7. VICODIN LIQ. [Concomitant]

REACTIONS (2)
  - Vomiting [None]
  - Diarrhoea [None]
